FAERS Safety Report 7596396-2 (Version None)
Quarter: 2011Q3

REPORT INFORMATION
  Report Type: 
  Country: None (occurrence: None)
  Receive Date: 20110707
  Receipt Date: 20110627
  Transmission Date: 20111222
  Serious: Yes (Disabling, Other)
  Sender: FDA-Public Use
  Company Number: US-MERCK-1104USA01933

PATIENT
  Age: 63 Year
  Sex: Female

DRUGS (4)
  1. FOSAMAX [Suspect]
     Route: 048
     Dates: start: 20100417
  2. FOSAMAX [Suspect]
     Indication: OSTEOPOROSIS
     Route: 048
     Dates: start: 20031230, end: 20100223
  3. FOSAMAX [Suspect]
     Route: 048
     Dates: start: 20100417
  4. FOSAMAX [Suspect]
     Indication: OSTEOPENIA
     Route: 048
     Dates: start: 20031230, end: 20100223

REACTIONS (6)
  - FEMUR FRACTURE [None]
  - ANXIETY [None]
  - DEPRESSION [None]
  - LOW TURNOVER OSTEOPATHY [None]
  - SARCOIDOSIS [None]
  - PELVIC FRACTURE [None]
